FAERS Safety Report 8322431-X (Version None)
Quarter: 2012Q2

REPORT INFORMATION
  Report Type: 
  Country: None (occurrence: None)
  Receive Date: 20120430
  Receipt Date: 20120426
  Transmission Date: 20120825
  Serious: Yes (Death, Life-Threatening)
  Sender: FDA-Public Use
  Company Number: PL-ROCHE-1044870

PATIENT
  Sex: Female
  Weight: 68 kg

DRUGS (7)
  1. MIRCERA [Suspect]
     Indication: NEPHROGENIC ANAEMIA
     Dosage: LAST DOSE PRIOR TO SAE 05 DEC 2011
     Route: 058
     Dates: start: 20110812, end: 20111212
  2. ACETYLSALICYLIC ACID SRT [Concomitant]
     Dates: start: 20090615
  3. OMEPRAZOLE [Concomitant]
     Dates: start: 20070716
  4. CALCIUM CARBONATE [Concomitant]
     Dosage: 2 U
     Dates: start: 20060524
  5. SIMVASTATIN [Concomitant]
     Dates: start: 20090815
  6. FUROSEMIDE [Concomitant]
     Dates: start: 20060524
  7. VITAMIN B COMPLEX CAP [Concomitant]
     Dates: start: 20090615

REACTIONS (1)
  - IDIOPATHIC PULMONARY FIBROSIS [None]
